FAERS Safety Report 11333239 (Version 1)
Quarter: 2015Q3

REPORT INFORMATION
  Report Type: Spontaneous
  Country: US (occurrence: US)
  Receive Date: 20150803
  Receipt Date: 20150803
  Transmission Date: 20151125
  Serious: No
  Sender: FDA-Public Use
  Company Number: US-ELI_LILLY_AND_COMPANY-US200711003263

PATIENT
  Age: 22 Year
  Sex: Female

DRUGS (3)
  1. ZYPREXA INTRAMUSCULAR [Suspect]
     Active Substance: OLANZAPINE
     Indication: AGITATION
     Dates: start: 200711
  2. COGENTIN [Concomitant]
     Active Substance: BENZTROPINE MESYLATE
  3. HALDOL [Concomitant]
     Active Substance: HALOPERIDOL

REACTIONS (1)
  - Exposure during pregnancy [Not Recovered/Not Resolved]

NARRATIVE: CASE EVENT DATE: 200711
